FAERS Safety Report 8652214 (Version 5)
Quarter: 2012Q4

REPORT INFORMATION
  Report Type: 
  Country: GB (occurrence: GB)
  Receive Date: 20120706
  Receipt Date: 20121019
  Transmission Date: 20130627
  Serious: Yes (Death, Hospitalization, Other)
  Sender: FDA-Public Use
  Company Number: PHFR2012GB003838

PATIENT
  Age: 63 Year
  Sex: Male

DRUGS (4)
  1. CLOZARIL [Suspect]
     Indication: SCHIZOPHRENIA
     Dosage: 250 mg nocte
     Route: 048
     Dates: start: 20060803
  2. CLOZARIL [Suspect]
     Dosage: 250 mg, ( nocte)
     Route: 048
  3. AMITRIPTYLINE [Concomitant]
     Dosage: 25 mg, (in nocte)
  4. FLUOXETINE [Concomitant]
     Dosage: 40 mg, daily

REACTIONS (11)
  - Neoplasm malignant [Fatal]
  - Pneumonia [Fatal]
  - Nosocomial infection [Fatal]
  - Metastatic neoplasm [Fatal]
  - Peripheral ischaemia [Fatal]
  - Post procedural sepsis [Fatal]
  - Deep vein thrombosis [Unknown]
  - Chronic obstructive pulmonary disease [Unknown]
  - Asthma [Unknown]
  - Neutrophil count increased [Unknown]
  - White blood cell count increased [Unknown]
